FAERS Safety Report 4734970-9 (Version None)
Quarter: 2005Q3

REPORT INFORMATION
  Report Type: 
  Country: None (occurrence: None)
  Receive Date: 20050721
  Receipt Date: 20050428
  Transmission Date: 20060218
  Serious: No
  Sender: FDA-Public Use
  Company Number: 2005SP000418

PATIENT
  Sex: Female
  Weight: 56.246 kg

DRUGS (1)
  1. LUNESTA [Suspect]
     Dosage: 1MG;HS;ORAL
     Route: 048
     Dates: start: 20050401

REACTIONS (2)
  - DRUG INEFFECTIVE [None]
  - MIDDLE INSOMNIA [None]
